FAERS Safety Report 11620070 (Version 1)
Quarter: 2015Q4

REPORT INFORMATION
  Report Type: Spontaneous
  Country: US (occurrence: US)
  Receive Date: 20151012
  Receipt Date: 20151012
  Transmission Date: 20160304
  Serious: No
  Sender: FDA-Public Use
  Company Number: JP-WARNER CHILCOTT 2014-000805

PATIENT
  Age: 70 Year
  Sex: Male

DRUGS (5)
  1. OMEPRAZOLE. [Concomitant]
     Active Substance: OMEPRAZOLE
  2. HYDROCHLOROTHIAZIDE. [Concomitant]
     Active Substance: HYDROCHLOROTHIAZIDE
  3. IRON [Concomitant]
     Active Substance: IRON
  4. DELZICOL [Suspect]
     Active Substance: MESALAMINE
     Indication: COLITIS ULCERATIVE
     Route: 048
     Dates: start: 201307
  5. OPHTHALMOLOGICALS [Concomitant]

REACTIONS (5)
  - Drug administration error [None]
  - Drug ineffective [None]
  - Medication residue present [None]
  - Colitis ulcerative [None]
  - Diarrhoea haemorrhagic [None]
